FAERS Safety Report 17066478 (Version 1)
Quarter: 2019Q4

REPORT INFORMATION
  Report Type: Spontaneous
  Country: NO (occurrence: NO)
  Receive Date: 20191122
  Receipt Date: 20191122
  Transmission Date: 20200122
  Serious: Yes (Hospitalization, Other)
  Sender: FDA-Public Use
  Company Number: NO-ASTRAZENECA-2019SF64735

PATIENT
  Age: 46 Year
  Sex: Male

DRUGS (9)
  1. ABILIFY [Concomitant]
     Active Substance: ARIPIPRAZOLE
  2. TRILAFON [Concomitant]
     Active Substance: PERPHENAZINE
  3. CALCIUM [Concomitant]
     Active Substance: CALCIUM
  4. ZYPREXA [Concomitant]
     Active Substance: OLANZAPINE
  5. XEPLION [Concomitant]
     Active Substance: PALIPERIDONE PALMITATE
  6. MULTIVITAMINS [Concomitant]
     Active Substance: VITAMINS
  7. VITAMIN D3 [Concomitant]
     Active Substance: CHOLECALCIFEROL
  8. HUMIRA [Concomitant]
     Active Substance: ADALIMUMAB
  9. SEROQUEL [Suspect]
     Active Substance: QUETIAPINE FUMARATE
     Indication: SCHIZOPHRENIA
     Route: 048
     Dates: start: 20100310, end: 20190515

REACTIONS (7)
  - Weight decreased [Unknown]
  - Inflammatory bowel disease [Unknown]
  - Abscess intestinal [Unknown]
  - Mechanical ileus [Unknown]
  - Fistula [Unknown]
  - Dysuria [Unknown]
  - Somnolence [Unknown]

NARRATIVE: CASE EVENT DATE: 2016
